FAERS Safety Report 20720199 (Version 1)
Quarter: 2022Q2

REPORT INFORMATION
  Report Type: Spontaneous
  Country: US (occurrence: US)
  Receive Date: 20220418
  Receipt Date: 20220418
  Transmission Date: 20220721
  Serious: No
  Sender: FDA-Public Use
  Company Number: US-SA-SAC20220413001672

PATIENT
  Sex: Male

DRUGS (1)
  1. DUPIXENT [Suspect]
     Active Substance: DUPILUMAB
     Dosage: 300 MG, QOW
     Route: 058
     Dates: start: 20220407

REACTIONS (7)
  - Ocular hyperaemia [Unknown]
  - Swelling face [Unknown]
  - Periorbital swelling [Unknown]
  - Eczema [Unknown]
  - Erythema of eyelid [Unknown]
  - Erythema [Unknown]
  - Pruritus [Unknown]
